FAERS Safety Report 6368216-5 (Version None)
Quarter: 2009Q3

REPORT INFORMATION
  Report Type: 
  Country: None (occurrence: None)
  Receive Date: 20090922
  Receipt Date: 20090916
  Transmission Date: 20100115
  Serious: Yes (Hospitalization)
  Sender: FDA-Public Use
  Company Number: JP-BRISTOL-MYERS SQUIBB COMPANY-14770291

PATIENT
  Age: 25 Year
  Sex: Male

DRUGS (4)
  1. ABILIFY [Suspect]
     Dosage: 1 DSF=28 TABS, 6MG EACH ON 30-AUG-2009; INITIATED THERAPY WITH 6 MG/DAY ON UNKNOWN DATE
     Route: 048
  2. DEPAS [Suspect]
     Dosage: 1 DSF= 14 TABS OF 0.5 MG EACH ,30AUG09
  3. WYPAX [Suspect]
     Dosage: 1 DSF= 28 TABS AT 1 MG,30AUG09
  4. RISPERDAL [Suspect]
     Dosage: 1DSF=102 TABS AT 1 MG,30AUG09

REACTIONS (1)
  - MULTIPLE DRUG OVERDOSE [None]
